FAERS Safety Report 4870204-2 (Version None)
Quarter: 2005Q4

REPORT INFORMATION
  Report Type: 
  Country: None (occurrence: None)
  Receive Date: 20051228
  Receipt Date: 20051216
  Transmission Date: 20060501
  Serious: Yes (Hospitalization)
  Sender: FDA-Public Use
  Company Number: 200413087GDS

PATIENT
  Age: 76 Year
  Sex: Male
  Weight: 70 kg

DRUGS (17)
  1. MOXIFLOXACIN HCL [Suspect]
     Indication: PNEUMONIA
     Dosage: 400 MG, QD, INTRAVENOUS
     Route: 042
     Dates: start: 20041104, end: 20041109
  2. ACENOCUMAROL [Concomitant]
  3. BERODUAL [Concomitant]
  4. MUCOSOLVAN [Concomitant]
  5. FORADIL [Concomitant]
  6. PULMICORT [Concomitant]
  7. ENARENAL [Concomitant]
  8. VASILIP [Concomitant]
  9. MILURIT [Concomitant]
  10. RYTHMOL [Concomitant]
  11. FUROSEMIDE [Concomitant]
  12. RANIGAST [Concomitant]
  13. VEROSPIRON [Concomitant]
  14. PME [Concomitant]
  15. FENICORT [Concomitant]
  16. AMINOPHYLLINA [Concomitant]
  17. KALIPOZ [Concomitant]

REACTIONS (3)
  - ASTHENIA [None]
  - DEHYDRATION [None]
  - DIARRHOEA [None]
